FAERS Safety Report 9620666 (Version 7)
Quarter: 2015Q2

REPORT INFORMATION
  Report Type: Spontaneous
  Country: CA (occurrence: CA)
  Receive Date: 20131015
  Receipt Date: 20150601
  Transmission Date: 20150821
  Serious: Yes (Hospitalization, Other)
  Sender: FDA-Public Use
  Company Number: CA-ROCHE-1288755

PATIENT
  Age: 69 Year
  Sex: Male
  Weight: 86.26 kg

DRUGS (17)
  1. XOLAIR [Suspect]
     Active Substance: OMALIZUMAB
     Route: 058
     Dates: start: 20131107
  2. XOLAIR [Suspect]
     Active Substance: OMALIZUMAB
     Route: 058
     Dates: start: 20150423
  3. ALENDRONATE [Suspect]
     Active Substance: ALENDRONATE SODIUM
     Indication: PRODUCT USED FOR UNKNOWN INDICATION
     Route: 065
  4. AVAMYS [Concomitant]
     Active Substance: FLUTICASONE FUROATE
     Route: 065
  5. TERAZOSIN [Concomitant]
     Active Substance: TERAZOSIN\TERAZOSIN HYDROCHLORIDE
  6. PAROXETINE [Concomitant]
     Active Substance: PAROXETINE\PAROXETINE HYDROCHLORIDE
  7. REACTINE (CETIRIZINE HYDROCHLORIDE) [Concomitant]
     Active Substance: CETIRIZINE HYDROCHLORIDE
  8. PREDNISONE. [Concomitant]
     Active Substance: PREDNISONE
     Route: 065
     Dates: start: 1977
  9. PREDNISONE. [Concomitant]
     Active Substance: PREDNISONE
     Route: 065
     Dates: start: 201501, end: 201502
  10. SPORANOX [Concomitant]
     Active Substance: ITRACONAZOLE\SODIUM CHLORIDE
  11. XOLAIR [Suspect]
     Active Substance: OMALIZUMAB
     Route: 058
     Dates: start: 201311
  12. VENTOLIN [Concomitant]
     Active Substance: ALBUTEROL SULFATE
  13. LANSOPRAZOLE. [Concomitant]
     Active Substance: LANSOPRAZOLE
  14. XOLAIR [Suspect]
     Active Substance: OMALIZUMAB
     Route: 058
     Dates: start: 20140123, end: 20140123
  15. SYMBICORT [Concomitant]
     Active Substance: BUDESONIDE\FORMOTEROL FUMARATE DIHYDRATE
     Route: 065
  16. PREDNISONE. [Concomitant]
     Active Substance: PREDNISONE
     Route: 065
     Dates: start: 201405
  17. XOLAIR [Suspect]
     Active Substance: OMALIZUMAB
     Indication: ASTHMA
     Route: 058
     Dates: start: 20130718

REACTIONS (21)
  - Gastric ulcer [Unknown]
  - Hyperhidrosis [Unknown]
  - Pneumonia [Unknown]
  - Fatigue [Unknown]
  - Wheezing [Recovered/Resolved]
  - Productive cough [Not Recovered/Not Resolved]
  - Snoring [Unknown]
  - Blood pressure systolic increased [Unknown]
  - Asthenia [Unknown]
  - Blood pressure decreased [Unknown]
  - Poor quality sleep [Unknown]
  - Weight increased [Unknown]
  - Pallor [Unknown]
  - Concomitant disease aggravated [Unknown]
  - Tachycardia [Unknown]
  - Pyrexia [Recovered/Resolved]
  - Asthma [Not Recovered/Not Resolved]
  - Osteoporosis [Unknown]
  - Nasopharyngitis [Unknown]
  - Dyspepsia [Unknown]
  - Somnolence [Unknown]

NARRATIVE: CASE EVENT DATE: 20130718
